FAERS Safety Report 8760988 (Version 5)
Quarter: 2013Q2

REPORT INFORMATION
  Report Type: Spontaneous
  Country: US (occurrence: US)
  Receive Date: 20120830
  Receipt Date: 20130517
  Transmission Date: 20140414
  Serious: Yes (Hospitalization)
  Sender: FDA-Public Use
  Company Number: US-B.I. PHARMACEUTICALS,INC./RIDGEFIELD-2012-BP-20660BP

PATIENT
  Age: 85 Year
  Sex: Male
  Weight: 69.85 kg

DRUGS (7)
  1. PRADAXA [Suspect]
     Indication: ATRIAL FIBRILLATION
     Dosage: 150 MG
     Dates: start: 20110810, end: 20110819
  2. ZOCOR [Concomitant]
     Dosage: 40 MG
     Dates: start: 200607
  3. LISINOPRIL/HCTZ [Concomitant]
     Dates: start: 2003
  4. ALLOPURINOL [Concomitant]
     Dosage: 300 MG
     Dates: start: 2003
  5. METOPROLOL [Concomitant]
     Dates: start: 200906
  6. FUROSEMIDE [Concomitant]
     Dates: start: 201108, end: 201201
  7. PANTAPRAZOLE [Concomitant]
     Dates: start: 201108, end: 201112

REACTIONS (1)
  - Gastrointestinal haemorrhage [Recovered/Resolved]
